FAERS Safety Report 5213290-2 (Version None)
Quarter: 2007Q1

REPORT INFORMATION
  Report Type: 
  Country: None (occurrence: None)
  Receive Date: 20070119
  Receipt Date: 20070110
  Transmission Date: 20070707
  Serious: Yes (Other)
  Sender: FDA-Public Use
  Company Number: US-JNJFOC-20061105084

PATIENT
  Sex: Male

DRUGS (5)
  1. VIADUR [Suspect]
     Indication: PROSTATE CANCER
     Route: 059
  2. LISINOPRIL [Concomitant]
     Indication: HYPERTENSION
  3. ANTI-GLAUCOMA EYE GTTS [Concomitant]
     Indication: GLAUCOMA
  4. LASIX [Concomitant]
  5. FLOMAX [Concomitant]

REACTIONS (3)
  - HEADACHE [None]
  - HOT FLUSH [None]
  - PITUITARY TUMOUR [None]
